FAERS Safety Report 8534916 (Version 4)
Quarter: 2014Q3

REPORT INFORMATION
  Report Type: Spontaneous
  Country: JP (occurrence: JP)
  Receive Date: 20120427
  Receipt Date: 20140827
  Transmission Date: 20150326
  Serious: Yes (Hospitalization, Other)
  Sender: FDA-Public Use
  Company Number: JP-B.I. PHARMACEUTICALS,INC./RIDGEFIELD-2012-EU-02159GD

PATIENT
  Age: 80 Year
  Sex: Male
  Weight: 80 kg

DRUGS (4)
  1. LIPID MODIFYING AGENTS [Concomitant]
     Indication: DYSLIPIDAEMIA
     Route: 065
  2. ANTIHYPERTENSIVES [Concomitant]
     Active Substance: UNSPECIFIED INGREDIENT
     Indication: HYPERTENSION
     Route: 065
  3. ACTILYSE [Suspect]
     Active Substance: ALTEPLASE
     Indication: CEREBRAL INFARCTION
     Dosage: 0.6 MG/KG
     Route: 065
  4. DABIGATRAN ETEXILATE [Suspect]
     Active Substance: DABIGATRAN ETEXILATE
     Indication: ATRIAL FIBRILLATION
     Dosage: 220 MG
     Route: 048

REACTIONS (7)
  - Off label use [Unknown]
  - Monoplegia [Unknown]
  - Sensory disturbance [Unknown]
  - Cerebral infarction [Unknown]
  - Dyslalia [Unknown]
  - Cerebral infarction [Recovered/Resolved with Sequelae]
  - Drug effect incomplete [Unknown]
